FAERS Safety Report 14890635 (Version 2)
Quarter: 2018Q2

REPORT INFORMATION
  Report Type: Report from Study
  Country: US (occurrence: US)
  Receive Date: 20180514
  Receipt Date: 20180611
  Transmission Date: 20180711
  Serious: Yes (Death)
  Sender: FDA-Public Use
  Company Number: PHHO2017US001713

PATIENT
  Age: 74 Year
  Sex: Male
  Weight: 79 kg

DRUGS (9)
  1. BLINDED PACLITAXEL [Suspect]
     Active Substance: PACLITAXEL
     Indication: ANAPLASTIC THYROID CANCER
     Dosage: 400 MG, QD (FOR 2-3 WEEKS)
     Route: 048
     Dates: start: 20160419, end: 20160607
  2. LINAGLIPTIN [Concomitant]
     Active Substance: LINAGLIPTIN
     Indication: PRODUCT USED FOR UNKNOWN INDICATION
     Dosage: 25 MG/1000 MG
     Route: 065
  3. PACLITAXEL. [Suspect]
     Active Substance: PACLITAXEL
     Indication: ANAPLASTIC THYROID CANCER
     Dosage: 80 MG/M2 IV OVER 1 HOUR QWEEK FOR 2-3 WEEKS
     Route: 042
     Dates: start: 20160419, end: 20160607
  4. PACLITAXEL. [Suspect]
     Active Substance: PACLITAXEL
     Dosage: 50 MG/M2 IV OVER 1 HOUR QWEEK FOR 6-7 WEEKS
     Route: 042
     Dates: end: 20160607
  5. LISINOPRIL AND HYDROCHLOROTHIAZIDE [Concomitant]
     Active Substance: HYDROCHLOROTHIAZIDE\LISINOPRIL
     Indication: PRODUCT USED FOR UNKNOWN INDICATION
     Dosage: 10 MG/12.5 MG
     Route: 065
  6. SILODOSIN [Concomitant]
     Active Substance: SILODOSIN
     Indication: PRODUCT USED FOR UNKNOWN INDICATION
     Dosage: 8 MG, QD
     Route: 065
  7. BLINDED NO TREATMENT RECEIVED [Suspect]
     Active Substance: INVESTIGATIONAL PRODUCT
     Indication: ANAPLASTIC THYROID CANCER
     Dosage: 400 MG, QD (FOR 2-3 WEEKS)
     Route: 048
     Dates: start: 20160419, end: 20160607
  8. BLINDED PAZOPANIB [Suspect]
     Active Substance: PAZOPANIB
     Indication: ANAPLASTIC THYROID CANCER
     Dosage: 400 MG, QD (FOR 2-3 WEEKS)
     Route: 048
     Dates: start: 20160419, end: 20160607
  9. LEVOCETIRIZINE [Concomitant]
     Active Substance: LEVOCETIRIZINE
     Indication: PRODUCT USED FOR UNKNOWN INDICATION
     Dosage: 5 MG, QD
     Route: 065

REACTIONS (1)
  - Cardiac arrest [Fatal]

NARRATIVE: CASE EVENT DATE: 20160623
